FAERS Safety Report 7061979-5 (Version None)
Quarter: 2010Q4

REPORT INFORMATION
  Report Type: 
  Country: None (occurrence: None)
  Receive Date: 20101026
  Receipt Date: 20100917
  Transmission Date: 20110411
  Serious: Yes (Hospitalization, Disabling, Other)
  Sender: FDA-Public Use
  Company Number: US-BAXTER-2009BH017998

PATIENT
  Age: 49 Year
  Sex: Male
  Weight: 133 kg

DRUGS (14)
  1. HEPARIN SODIUM INJECTION [Suspect]
     Indication: CORONARY ARTERY BYPASS
     Route: 040
     Dates: start: 20071222, end: 20071222
  2. HEPARIN SODIUM INJECTION [Suspect]
     Indication: CATHETERISATION CARDIAC
     Route: 040
     Dates: start: 20071222, end: 20071222
  3. HEPARIN SODIUM INJECTION [Suspect]
     Indication: PROPHYLAXIS
     Route: 040
     Dates: start: 20071222, end: 20071222
  4. HEPARIN SODIUM INJECTION [Suspect]
     Route: 042
     Dates: start: 20071230, end: 20071230
  5. HEPARIN SODIUM INJECTION [Suspect]
     Route: 042
     Dates: start: 20071230, end: 20071230
  6. HEPARIN SODIUM INJECTION [Suspect]
     Route: 042
     Dates: start: 20071230, end: 20071230
  7. HEPARIN [Suspect]
     Indication: PULMONARY EMBOLISM
     Route: 041
     Dates: start: 20071229, end: 20080102
  8. HEPARIN [Suspect]
     Route: 041
     Dates: start: 20071222, end: 20071222
  9. ASPIRIN [Concomitant]
     Indication: PRODUCT USED FOR UNKNOWN INDICATION
     Route: 065
  10. DILTIAZEM [Concomitant]
     Indication: PRODUCT USED FOR UNKNOWN INDICATION
     Route: 048
  11. MULTI-VITAMINS [Concomitant]
     Indication: PRODUCT USED FOR UNKNOWN INDICATION
     Route: 065
  12. TRIAMTERENE [Concomitant]
     Indication: PRODUCT USED FOR UNKNOWN INDICATION
     Route: 065
  13. HYDROCHLOROTHIAZIDE [Concomitant]
     Indication: PRODUCT USED FOR UNKNOWN INDICATION
     Route: 065
  14. LIPITOR [Concomitant]
     Indication: PRODUCT USED FOR UNKNOWN INDICATION
     Route: 065

REACTIONS (15)
  - ACTIVATED PARTIAL THROMBOPLASTIN TIME PROLONGED [None]
  - ACUTE LUNG INJURY [None]
  - CARDIAC ARREST [None]
  - CARDIOGENIC SHOCK [None]
  - ERYTHEMA [None]
  - HEPARIN-INDUCED THROMBOCYTOPENIA [None]
  - HYPOAESTHESIA [None]
  - INFUSION SITE VESICLES [None]
  - INJECTION SITE RASH [None]
  - MUSCLE INJURY [None]
  - NEUROPATHY PERIPHERAL [None]
  - OEDEMA PERIPHERAL [None]
  - POST PROCEDURAL COMPLICATION [None]
  - PULMONARY EMBOLISM [None]
  - RESPIRATORY FAILURE [None]
